FAERS Safety Report 8106405-X (Version None)
Quarter: 2012Q1

REPORT INFORMATION
  Report Type: 
  Country: None (occurrence: None)
  Receive Date: 20120202
  Receipt Date: 20120124
  Transmission Date: 20120608
  Serious: Yes (Hospitalization)
  Sender: FDA-Public Use
  Company Number: US-BAYER-2011-036571

PATIENT
  Age: 33 Year
  Sex: Female
  Weight: 99.773 kg

DRUGS (4)
  1. MEDROL [Concomitant]
     Indication: MUSCLE STRAIN
  2. YAZ [Suspect]
     Indication: ACNE
     Dosage: UNK
     Dates: start: 20090206, end: 20090429
  3. FLEXERIL [Concomitant]
     Indication: MUSCLE STRAIN
  4. OMEPRAZOLE [Concomitant]
     Dosage: UNK
     Dates: start: 20020101

REACTIONS (18)
  - ANXIETY [None]
  - ABDOMINAL PAIN [None]
  - BACK PAIN [None]
  - PULMONARY EMBOLISM [None]
  - PLEURISY [None]
  - EMOTIONAL DISTRESS [None]
  - GENERAL PHYSICAL HEALTH DETERIORATION [None]
  - INJURY [None]
  - PARAESTHESIA [None]
  - ASTHENIA [None]
  - MUSCULOSKELETAL PAIN [None]
  - WEIGHT INCREASED [None]
  - FATIGUE [None]
  - CHEST PAIN [None]
  - HYPOAESTHESIA [None]
  - PAIN [None]
  - DYSPNOEA [None]
  - MALAISE [None]
